FAERS Safety Report 6645681-7 (Version None)
Quarter: 2010Q1

REPORT INFORMATION
  Report Type: 
  Country: None (occurrence: None)
  Receive Date: 20100323
  Receipt Date: 20100309
  Transmission Date: 20100710
  Serious: Yes (Hospitalization)
  Sender: FDA-Public Use
  Company Number: US-ELI_LILLY_AND_COMPANY-US201003002016

PATIENT
  Sex: Female

DRUGS (9)
  1. FORTEO [Suspect]
     Indication: OSTEOPOROSIS
     Dosage: 20 UG, DAILY (1/D)
     Dates: start: 20090101, end: 20100201
  2. FORTEO [Suspect]
     Dosage: 20 UG, DAILY (1/D)
     Dates: start: 20100201
  3. PLAVIX [Concomitant]
  4. VITRON C [Concomitant]
  5. COZAAR [Concomitant]
  6. ARICEPT [Concomitant]
  7. NAMENDA [Concomitant]
  8. RHINOCAP [Concomitant]
  9. VITAMINS [Concomitant]

REACTIONS (3)
  - CHOLECYSTECTOMY [None]
  - DEMENTIA [None]
  - FATIGUE [None]
